FAERS Safety Report 9375302 (Version 1)
Quarter: 2013Q2

REPORT INFORMATION
  Report Type: Spontaneous
  Country: US (occurrence: US)
  Receive Date: 20130628
  Receipt Date: 20130628
  Transmission Date: 20140414
  Serious: Yes (Other)
  Sender: FDA-Public Use
  Company Number: US-UCBSA-045897

PATIENT
  Age: 26 Year
  Sex: Female
  Weight: 47.6 kg

DRUGS (5)
  1. VIMPAT [Suspect]
     Indication: CONVULSION
     Route: 048
     Dates: start: 201003
  2. VIMPAT [Suspect]
     Indication: CONVULSION
     Dosage: 1.5 TABLETS IN AM 2 TABLETS IN PM
     Route: 048
     Dates: start: 20111117
  3. KEPPRA [Concomitant]
     Indication: CONVULSION
     Route: 048
     Dates: start: 2008
  4. FOLIC ACID [Concomitant]
     Indication: PREVENTIVE SURGERY
     Dosage: DOSE PER INTAKE: 400 MCG AND TOTAL DAILY DOSE: 1600 MCG
     Route: 048
     Dates: start: 201108
  5. PRAMIPEXOLE [Concomitant]
     Indication: RESTLESS LEGS SYNDROME
     Dosage: DOSE: 0.5 MG, HORA SOMNI
     Route: 048
     Dates: start: 2008

REACTIONS (2)
  - Abortion spontaneous [Unknown]
  - Pregnancy [Recovered/Resolved]
